FAERS Safety Report 4632097-8 (Version None)
Quarter: 2005Q2

REPORT INFORMATION
  Report Type: 
  Country: None (occurrence: None)
  Receive Date: 20050331
  Receipt Date: 20040330
  Transmission Date: 20051028
  Serious: Yes (Other)
  Sender: FDA-Public Use
  Company Number: 200411568BCC

PATIENT
  Age: 63 Year
  Sex: Male
  Weight: 97.5234 kg

DRUGS (3)
  1. ALEVE [Suspect]
     Indication: ARTHRALGIA
     Dosage: 220 MG, ONCE, ORAL; 440 MG, TOTAL DAILY, ORAL
     Route: 048
     Dates: start: 20040104
  2. ALEVE [Suspect]
     Indication: ARTHRALGIA
     Dosage: 220 MG, ONCE, ORAL; 440 MG, TOTAL DAILY, ORAL
     Route: 048
     Dates: start: 20040201
  3. ALEVE [Suspect]
     Indication: ARTHRALGIA
     Dosage: 220 MG, ONCE, ORAL; 440 MG, TOTAL DAILY, ORAL
     Route: 048
     Dates: start: 20040329

REACTIONS (4)
  - DYSPHAGIA [None]
  - HYPERSENSITIVITY [None]
  - OROPHARYNGEAL SWELLING [None]
  - SWOLLEN TONGUE [None]
